FAERS Safety Report 8455628-9 (Version None)
Quarter: 2012Q2

REPORT INFORMATION
  Report Type: 
  Country: None (occurrence: None)
  Receive Date: 20120621
  Receipt Date: 20120614
  Transmission Date: 20120825
  Serious: Yes (Hospitalization, Other)
  Sender: FDA-Public Use
  Company Number: US-CELGENEUS-163-21880-12041180

PATIENT
  Sex: Male
  Weight: 60.7 kg

DRUGS (17)
  1. CARFILZOMIB [Suspect]
     Indication: MULTIPLE MYELOMA
     Dosage: 33.4 MILLIGRAM
     Route: 065
     Dates: start: 20110916
  2. CARFILZOMIB [Suspect]
     Dosage: 33.4 MILLIGRAM
     Route: 065
     Dates: start: 20111020, end: 20111021
  3. ASPIRIN [Concomitant]
     Indication: ANTICOAGULANT THERAPY
     Dosage: 81 MILLIGRAM
     Route: 048
     Dates: start: 20110914
  4. CLONAZEPAM [Concomitant]
     Indication: ANXIETY
     Dosage: .25 MILLIGRAM
     Route: 048
     Dates: start: 20110608
  5. ASPIRIN [Concomitant]
     Indication: ANTIPLATELET THERAPY
  6. PROZAC [Concomitant]
     Indication: DEPRESSION
     Dosage: 20 MILLIGRAM
     Route: 048
     Dates: start: 20110624
  7. REVLIMID [Suspect]
     Indication: MULTIPLE MYELOMA
     Dosage: 25 MILLIGRAM
     Route: 048
     Dates: start: 20110916, end: 20120130
  8. DEXAMETHASONE SODIUM POSPHATE [Suspect]
     Indication: MULTIPLE MYELOMA
     Dosage: 40 MILLIGRAM
     Route: 065
     Dates: start: 20110916, end: 20120131
  9. HYDROMORPHONE HCL [Concomitant]
     Indication: PAIN
     Dosage: 2 MILLIGRAM
     Route: 048
     Dates: start: 20110222
  10. NORVASC [Concomitant]
     Indication: HYPERTENSION
     Dosage: 5 MILLIGRAM
     Route: 048
  11. LANSOPRAZOLE [Concomitant]
     Dosage: 15 MILLIGRAM
     Route: 048
     Dates: start: 20110914
  12. VALACYCLOVIR HYDROCHLORIDE [Concomitant]
     Indication: ANTIVIRAL PROPHYLAXIS
     Dosage: 500 MILLIGRAM
     Route: 048
     Dates: start: 20110914
  13. CARFILZOMIB [Suspect]
     Dosage: 45 MILLIGRAM
     Route: 065
     Dates: start: 20110923
  14. CARFILZOMIB [Suspect]
     Dosage: 45 MILLIGRAM
     Route: 065
     Dates: start: 20120110, end: 20120125
  15. CIPROFLOXACIN HYDROCHLORIDE [Concomitant]
     Indication: ANTIBIOTIC PROPHYLAXIS
     Dosage: 500 MILLIGRAM
     Route: 048
     Dates: start: 20110914
  16. CARFILZOMIB [Suspect]
     Dosage: 45 MILLIGRAM
     Route: 065
     Dates: start: 20111027, end: 20111214
  17. CARFILZOMIB [Suspect]
     Dosage: 33.4 MILLIGRAM
     Route: 065
     Dates: start: 20120214, end: 20120229

REACTIONS (1)
  - HEPATITIS C [None]
